FAERS Safety Report 9907166 (Version 3)
Quarter: 2014Q1

REPORT INFORMATION
  Report Type: Spontaneous
  Country: IL (occurrence: IL)
  Receive Date: 20140218
  Receipt Date: 20140321
  Transmission Date: 20141002
  Serious: Yes (Death, Other)
  Sender: FDA-Public Use
  Company Number: IL-JNJFOC-20140208298

PATIENT
  Sex: Male

DRUGS (1)
  1. IBRUTINIB [Suspect]
     Indication: CHRONIC LYMPHOCYTIC LEUKAEMIA
     Route: 048

REACTIONS (5)
  - Death [Fatal]
  - Paralysis [Recovering/Resolving]
  - Aphasia [Recovering/Resolving]
  - Aspergillus infection [Recovering/Resolving]
  - Off label use [Unknown]
